FAERS Safety Report 5407099-4 (Version None)
Quarter: 2007Q3

REPORT INFORMATION
  Report Type: 
  Country: None (occurrence: None)
  Receive Date: 20070803
  Receipt Date: 20070803
  Transmission Date: 20080115
  Serious: Yes (Hospitalization)
  Sender: FDA-Public Use
  Company Number: None

PATIENT
  Age: 84 Year
  Sex: Male

DRUGS (2)
  1. FOSINOPRIL SODIUM [Suspect]
     Indication: HYPERTENSION
     Dosage: 10MG EVERY DAY PO
     Route: 048
     Dates: start: 20061215, end: 20070429
  2. METOPROLOL SUCCINATE [Suspect]
     Dosage: 25MG EVERY DAY PO
     Route: 048
     Dates: start: 20061215, end: 20070429

REACTIONS (1)
  - SYNCOPE [None]
